FAERS Safety Report 24112942 (Version 3)
Quarter: 2024Q4

REPORT INFORMATION
  Report Type: Spontaneous
  Country: JP (occurrence: JP)
  Receive Date: 20240719
  Receipt Date: 20241121
  Transmission Date: 20250115
  Serious: Yes (Death, Disabling)
  Sender: EISAI
  Company Number: JP-Eisai-202404955_LEN-EC_P_1

PATIENT
  Age: 42 Year
  Sex: Female

DRUGS (2)
  1. LENVIMA [Suspect]
     Active Substance: LENVATINIB
     Indication: Endometrial cancer
     Route: 048
     Dates: start: 20240710, end: 20240710
  2. KEYTRUDA [Concomitant]
     Active Substance: PEMBROLIZUMAB
     Indication: Endometrial cancer
     Route: 041

REACTIONS (2)
  - Cerebral haemorrhage [Fatal]
  - Hypertension [Unknown]

NARRATIVE: CASE EVENT DATE: 20240711
